FAERS Safety Report 8534852 (Version 3)
Quarter: 2013Q3

REPORT INFORMATION
  Report Type: Spontaneous
  Country: GR (occurrence: GR)
  Receive Date: 20120427
  Receipt Date: 20130823
  Transmission Date: 20140515
  Serious: Yes (Other)
  Sender: FDA-Public Use
  Company Number: PHHY2012GR033358

PATIENT
  Sex: Female

DRUGS (2)
  1. ILARIS [Suspect]
     Indication: JUVENILE IDIOPATHIC ARTHRITIS
     Dosage: 1X1 MONTHLY SC
     Route: 058
     Dates: start: 201104
  2. METHOTREXATE [Concomitant]
     Indication: JUVENILE IDIOPATHIC ARTHRITIS

REACTIONS (2)
  - Tuberculosis [Unknown]
  - Mycobacterial infection [Unknown]
